FAERS Safety Report 20988288 (Version 2)
Quarter: 2022Q3

REPORT INFORMATION
  Report Type: Spontaneous
  Country: US (occurrence: US)
  Receive Date: 20220621
  Receipt Date: 20220719
  Transmission Date: 20221027
  Serious: No
  Sender: FDA-Public Use
  Company Number: US-BRISTOL-MYERS SQUIBB COMPANY-2022-061912

PATIENT
  Age: 69 Year
  Sex: Female

DRUGS (1)
  1. REVLIMID [Suspect]
     Active Substance: LENALIDOMIDE
     Indication: Plasma cell myeloma
     Dosage: LOT NUMBER: A3666E WITH EXPIRY DATE : 31-MAY-2024
     Route: 048
     Dates: start: 202203

REACTIONS (2)
  - Diarrhoea [Unknown]
  - Blood potassium decreased [Unknown]
